FAERS Safety Report 10901885 (Version 1)
Quarter: 2015Q1

REPORT INFORMATION
  Report Type: Report from Study
  Country: PE (occurrence: PE)
  Receive Date: 20150310
  Receipt Date: 20150310
  Transmission Date: 20150721
  Serious: Yes (Death)
  Sender: FDA-Public Use
  Company Number: PE-GLAXOSMITHKLINE-PE2015GSK030891

PATIENT
  Sex: Female

DRUGS (1)
  1. FLUTICASONE PROPIONATE+SALMETEROL XINAFOATE [Suspect]
     Active Substance: FLUTICASONE PROPIONATE\SALMETEROL XINAFOATE
     Indication: ASTHMA
     Dosage: 500 ?G, UNK
     Dates: start: 20140124

REACTIONS (1)
  - Emphysema [Fatal]
